FAERS Safety Report 5405142-X (Version None)
Quarter: 2007Q3

REPORT INFORMATION
  Report Type: 
  Country: None (occurrence: None)
  Receive Date: 20070803
  Receipt Date: 20070801
  Transmission Date: 20080115
  Serious: Yes (Death, Hospitalization, Other)
  Sender: FDA-Public Use
  Company Number: PHMT2007CA01350

PATIENT
  Age: 86 Year
  Sex: Female

DRUGS (8)
  1. FEMARA [Suspect]
     Indication: BREAST CANCER METASTATIC
     Dosage: 2.5 MG, QD
     Route: 048
     Dates: start: 20060630, end: 20070605
  2. PAMIDRONATE DISODIUM [Concomitant]
     Indication: METASTASES TO BONE
     Dosage: 90 MG IV, QW4
     Route: 042
  3. MICARDIS [Concomitant]
     Dosage: 80 MG, QD
  4. ZANTAC 150 [Concomitant]
     Dosage: 150 MG, BID
  5. VITAMIN B-12 [Concomitant]
     Dosage: 1000 UG, QMO
     Route: 030
  6. TUMS [Concomitant]
     Dosage: QD
  7. XALATAN [Concomitant]
     Dosage: UNK, UNK
  8. XALATAN [Concomitant]
     Dosage: UNK, UNK

REACTIONS (4)
  - ASTHENIA [None]
  - CONFUSIONAL STATE [None]
  - HYPERCALCAEMIA OF MALIGNANCY [None]
  - NAUSEA [None]
